FAERS Safety Report 23746559 (Version 2)
Quarter: 2024Q2

REPORT INFORMATION
  Report Type: Spontaneous
  Country: FR (occurrence: FR)
  Receive Date: 20240416
  Receipt Date: 20240513
  Transmission Date: 20240715
  Serious: Yes (Death, Other)
  Sender: FDA-Public Use
  Company Number: FR-TEVA-VS-3180254

PATIENT
  Age: 41 Year
  Sex: Male

DRUGS (11)
  1. PAROXETINE [Suspect]
     Active Substance: PAROXETINE
     Indication: Back pain
     Dosage: TIME INTERVAL: 0.33333333 DAYS: A DOSAGE OF 1 TABLET IN THE MORNING, 1 TABLET AT NOON AND 1 TABLE...
     Route: 065
     Dates: start: 20160829
  2. TRAMADOL [Suspect]
     Active Substance: TRAMADOL\TRAMADOL HYDROCHLORIDE
     Indication: Product used for unknown indication
     Route: 065
  3. QUETIAPINE [Suspect]
     Active Substance: QUETIAPINE
     Indication: Product used for unknown indication
     Route: 065
  4. CLOBAZAM [Suspect]
     Active Substance: CLOBAZAM
     Indication: Product used for unknown indication
     Route: 065
  5. ETIFOXINE [Suspect]
     Active Substance: ETIFOXINE
     Indication: Product used for unknown indication
     Route: 065
  6. VALIUM [Suspect]
     Active Substance: DIAZEPAM
     Indication: Product used for unknown indication
     Route: 065
  7. PAROXETINE MESYLATE [Suspect]
     Active Substance: PAROXETINE MESYLATE
     Indication: Product used for unknown indication
     Route: 065
  8. ARTANE [Suspect]
     Active Substance: TRIHEXYPHENIDYL HYDROCHLORIDE
     Indication: Product used for unknown indication
     Route: 065
  9. SKENAN [Suspect]
     Active Substance: MORPHINE SULFATE
     Indication: Product used for unknown indication
     Dosage: LP 30 AND 10
     Route: 065
  10. FENTANYL [Suspect]
     Active Substance: FENTANYL\FENTANYL CITRATE
     Indication: Product used for unknown indication
     Dosage: BETWEEN 27 JULY 2016 AND 05 SEPT 2016,
     Route: 065
  11. CODEINE PHOSPHATE\IBUPROFEN [Suspect]
     Active Substance: CODEINE PHOSPHATE\IBUPROFEN
     Indication: Product used for unknown indication
     Route: 065

REACTIONS (19)
  - Toxicity to various agents [Fatal]
  - Hepatic enzyme increased [Unknown]
  - Pulmonary oedema [Unknown]
  - Hepatobiliary disease [Unknown]
  - Somnolence [Unknown]
  - Hepatitis [Unknown]
  - Panic attack [Unknown]
  - Aggression [Unknown]
  - Asteatosis [Unknown]
  - Cardiac disorder [Unknown]
  - Hepatic cytolysis [Unknown]
  - Drug screen false positive [Unknown]
  - Hepatic failure [Unknown]
  - Hyperglycaemia [Unknown]
  - Cholecystitis infective [Unknown]
  - Myocarditis [Unknown]
  - Thirst [Unknown]
  - Confusional state [Unknown]
  - Logorrhoea [Unknown]
